FAERS Safety Report 14231775 (Version 1)
Quarter: 2017Q4

REPORT INFORMATION
  Report Type: Report from Study
  Country: US (occurrence: US)
  Receive Date: 20171128
  Receipt Date: 20171128
  Transmission Date: 20180321
  Serious: Yes (Hospitalization)
  Sender: FDA-Public Use
  Company Number: US-B.I. PHARMACEUTICALS,INC./RIDGEFIELD-2015-BI-56522BP

PATIENT
  Age: 73 Year
  Sex: Female
  Weight: 45.45 kg

DRUGS (5)
  1. OFEV [Suspect]
     Active Substance: NINTEDANIB
     Indication: IDIOPATHIC PULMONARY FIBROSIS
     Route: 048
     Dates: start: 20150924, end: 201710
  2. OFEV [Suspect]
     Active Substance: NINTEDANIB
     Route: 048
  3. CETIRIZINE [Concomitant]
     Active Substance: CETIRIZINE HYDROCHLORIDE
     Indication: HYPERSENSITIVITY
     Route: 065
  4. ALBUTEROL. [Concomitant]
     Active Substance: ALBUTEROL
     Indication: BRONCHOSPASM
     Dosage: STRENGTH: 0.083%
     Route: 065
  5. ATENOLOL. [Concomitant]
     Active Substance: ATENOLOL
     Indication: HYPERSENSITIVITY
     Route: 065

REACTIONS (13)
  - Diarrhoea [Recovered/Resolved]
  - Somnolence [Unknown]
  - Decreased appetite [Unknown]
  - Chest discomfort [Unknown]
  - Muscle spasms [Unknown]
  - Dyspnoea [Unknown]
  - Fatigue [Unknown]
  - Productive cough [Unknown]
  - Vomiting [Unknown]
  - Weight decreased [Recovered/Resolved]
  - Irritable bowel syndrome [Unknown]
  - Haematochezia [Unknown]
  - Abdominal pain upper [Unknown]

NARRATIVE: CASE EVENT DATE: 201509
